FAERS Safety Report 12940391 (Version 3)
Quarter: 2017Q1

REPORT INFORMATION
  Report Type: Report from Study
  Country: CA (occurrence: CA)
  Receive Date: 20161115
  Receipt Date: 20170118
  Transmission Date: 20170428
  Serious: Yes (Hospitalization)
  Sender: FDA-Public Use
  Company Number: CA-BIOGEN-2016BI00316842

PATIENT
  Age: 62 Year
  Sex: Female

DRUGS (1)
  1. FAMPYRA [Suspect]
     Active Substance: DALFAMPRIDINE
     Indication: GAIT DISTURBANCE
     Route: 048
     Dates: start: 20140924, end: 20161103

REACTIONS (4)
  - Clostridium difficile infection [Unknown]
  - Urinary tract infection [Unknown]
  - Diarrhoea [Unknown]
  - Catheter placement [Unknown]

NARRATIVE: CASE EVENT DATE: 201609
